FAERS Safety Report 5937154-1 (Version None)
Quarter: 2008Q4

REPORT INFORMATION
  Report Type: 
  Country: None (occurrence: None)
  Receive Date: 20081031
  Receipt Date: 20081029
  Transmission Date: 20090506
  Serious: Yes (Hospitalization)
  Sender: FDA-Public Use
  Company Number: GB-BRISTOL-MYERS SQUIBB COMPANY-14387534

PATIENT
  Age: 34 Year
  Sex: Male

DRUGS (2)
  1. REYATAZ [Suspect]
     Indication: HIV INFECTION
     Dates: start: 20080722
  2. TRUVADA [Suspect]
     Indication: HIV INFECTION
     Dates: start: 20080722

REACTIONS (2)
  - CONSTIPATION [None]
  - JAUNDICE [None]
